FAERS Safety Report 4683251-0 (Version None)
Quarter: 2005Q2

REPORT INFORMATION
  Report Type: 
  Country: None (occurrence: None)
  Receive Date: 20050602
  Receipt Date: 20050203
  Transmission Date: 20051028
  Serious: No
  Sender: FDA-Public Use
  Company Number: USA050289903

PATIENT
  Age: 71 Year
  Sex: Female

DRUGS (5)
  1. PROZAC [Suspect]
     Indication: DEPRESSION
     Dates: start: 19870101
  2. CYMBALTA [Suspect]
     Indication: DEPRESSION
     Dosage: 60 MG DAY
     Dates: start: 20041001
  3. SYNTHROID [Concomitant]
  4. DETROL [Concomitant]
  5. GLUCOSAMINE [Concomitant]

REACTIONS (6)
  - BREATH ODOUR [None]
  - DRUG INEFFECTIVE [None]
  - DRY MOUTH [None]
  - DYSGEUSIA [None]
  - FATIGUE [None]
  - SOMNOLENCE [None]
